FAERS Safety Report 4356208-7 (Version None)
Quarter: 2004Q2

REPORT INFORMATION
  Report Type: 
  Country: None (occurrence: None)
  Receive Date: 20040511
  Receipt Date: 20040428
  Transmission Date: 20050107
  Serious: No
  Sender: FDA-Public Use
  Company Number: 28326

PATIENT
  Sex: 0

DRUGS (1)
  1. VIGAMOX [Suspect]
     Indication: PROPHYLAXIS

REACTIONS (4)
  - CORNEAL DISORDER [None]
  - CORNEAL OEDEMA [None]
  - POST PROCEDURAL COMPLICATION [None]
  - VISUAL ACUITY REDUCED [None]
